FAERS Safety Report 10239038 (Version 2)
Quarter: 2014Q3

REPORT INFORMATION
  Report Type: Spontaneous
  Country: US (occurrence: US)
  Receive Date: 20140616
  Receipt Date: 20140707
  Transmission Date: 20150326
  Serious: Yes (Other)
  Sender: FDA-Public Use
  Company Number: US-PFIZER INC-2014161234

PATIENT
  Age: 57 Year
  Sex: Female
  Weight: 108.84 kg

DRUGS (2)
  1. LOSARTAN [Concomitant]
     Active Substance: LOSARTAN
     Indication: HYPERTENSION
     Dosage: UNK
  2. LYRICA [Suspect]
     Active Substance: PREGABALIN
     Indication: NEURALGIA
     Dosage: 300 MG, 2X/DAY
     Route: 048
     Dates: start: 201309, end: 201406

REACTIONS (6)
  - Feeling of body temperature change [Unknown]
  - Decreased appetite [Unknown]
  - Fatigue [Unknown]
  - Mental impairment [Unknown]
  - Activities of daily living impaired [Unknown]
  - Pollakiuria [Unknown]

NARRATIVE: CASE EVENT DATE: 201406
